FAERS Safety Report 11463791 (Version 1)
Quarter: 2015Q3

REPORT INFORMATION
  Report Type: Spontaneous
  Country: US (occurrence: US)
  Receive Date: 20150831
  Receipt Date: 20150831
  Transmission Date: 20151125
  Serious: No
  Sender: FDA-Public Use
  Company Number: US-ELI_LILLY_AND_COMPANY-US201105000662

PATIENT
  Age: 29 Year
  Sex: Male
  Weight: 65.76 kg

DRUGS (6)
  1. KEFLEX [Concomitant]
     Active Substance: CEPHALEXIN
  2. CYMBALTA [Suspect]
     Active Substance: DULOXETINE HYDROCHLORIDE
     Dosage: 30 MG, UNKNOWN
     Dates: end: 20110411
  3. RITALIN [Concomitant]
     Active Substance: METHYLPHENIDATE HYDROCHLORIDE
  4. CONCERTA [Concomitant]
     Active Substance: METHYLPHENIDATE HYDROCHLORIDE
  5. CYMBALTA [Suspect]
     Active Substance: DULOXETINE HYDROCHLORIDE
     Indication: ANXIETY
     Dosage: 30 MG, QD
  6. CYMBALTA [Suspect]
     Active Substance: DULOXETINE HYDROCHLORIDE
     Dosage: 30 MG, QD

REACTIONS (17)
  - Urine analysis abnormal [Unknown]
  - Fluid retention [Recovered/Resolved]
  - Headache [Recovered/Resolved]
  - Scrotal disorder [Recovered/Resolved]
  - Chromaturia [Unknown]
  - Testicular pain [Recovered/Resolved]
  - Urinary retention [Unknown]
  - Blood urine present [Unknown]
  - Infection [Recovered/Resolved]
  - Testicular oedema [Recovered/Resolved]
  - White blood cell count increased [Recovered/Resolved]
  - Loss of libido [Recovered/Resolved]
  - Urine flow decreased [Unknown]
  - Myalgia [Recovered/Resolved]
  - Testicular microlithiasis [Unknown]
  - Urine output decreased [Unknown]
  - Prostatism [Recovered/Resolved]
